FAERS Safety Report 25964926 (Version 1)
Quarter: 2025Q4

REPORT INFORMATION
  Report Type: Spontaneous
  Country: US (occurrence: US)
  Receive Date: 20251027
  Receipt Date: 20251027
  Transmission Date: 20260117
  Serious: Yes (Death)
  Sender: KNIGHT THERAPEUTICS
  Company Number: US-Knight Therapeutics (USA) Inc.-2187370

PATIENT
  Age: 04 Year
  Sex: Female

DRUGS (5)
  1. IMPAVIDO [Suspect]
     Active Substance: MILTEFOSINE
     Indication: Balamuthia infection
  2. FLUCONAZOLE [Concomitant]
     Active Substance: FLUCONAZOLE
  3. FLUCYTOSINE [Concomitant]
     Active Substance: FLUCYTOSINE
  4. BACTRIM [Concomitant]
     Active Substance: SULFAMETHOXAZOLE\TRIMETHOPRIM
  5. AZITHROMYCIN DIHYDRATE [Concomitant]
     Active Substance: AZITHROMYCIN DIHYDRATE

REACTIONS (1)
  - Product use in unapproved indication [Fatal]
